FAERS Safety Report 14650549 (Version 3)
Quarter: 2018Q3

REPORT INFORMATION
  Report Type: Spontaneous
  Country: US (occurrence: US)
  Receive Date: 20180316
  Receipt Date: 20180814
  Transmission Date: 20181010
  Serious: No
  Sender: FDA-Public Use
  Company Number: US-CELLTRION INC.-2017US010889

PATIENT

DRUGS (7)
  1. INFLECTRA [Suspect]
     Active Substance: INFLIXIMAB-DYYB
     Dosage: UNK UNK, Q4WEEKS
     Route: 065
     Dates: start: 20180622, end: 20180622
  2. INFLECTRA [Suspect]
     Active Substance: INFLIXIMAB-DYYB
     Indication: PSORIASIS
     Dosage: 10 VIALS PER MONTH
     Route: 065
  3. INFLECTRA [Suspect]
     Active Substance: INFLIXIMAB-DYYB
     Dosage: 5 MG/KG, UNK (0, 2 AND 6 WEEKS, THEN EVERY 8 WEEKS)
     Route: 065
     Dates: start: 20180119, end: 20180119
  4. INFLECTRA [Suspect]
     Active Substance: INFLIXIMAB-DYYB
     Dosage: 5 MG/KG, CYCLIC (0,2 AND 6 WEEKS, THEN EVERY 8 WEEKS)
     Dates: start: 20180216, end: 20180216
  5. INFLECTRA [Suspect]
     Active Substance: INFLIXIMAB-DYYB
     Dosage: UNK
     Route: 065
     Dates: start: 20180316, end: 20180316
  6. INFLECTRA [Suspect]
     Active Substance: INFLIXIMAB-DYYB
     Dosage: EVERY 4 WEEKS
     Route: 065
     Dates: start: 20180413, end: 20180413
  7. INFLECTRA [Suspect]
     Active Substance: INFLIXIMAB-DYYB
     Dosage: UNK
     Route: 065
     Dates: start: 20180511, end: 20180511

REACTIONS (2)
  - Inappropriate schedule of drug administration [Unknown]
  - Drug prescribing error [Unknown]
